APPROVED DRUG PRODUCT: IMDUR
Active Ingredient: ISOSORBIDE MONONITRATE
Strength: 60MG **Federal Register determination that product was not discontinued or withdrawn for safety or effectiveness reasons**
Dosage Form/Route: TABLET, EXTENDED RELEASE;ORAL
Application: N020225 | Product #002
Applicant: SCHERING PLOUGH CORP
Approved: Aug 12, 1993 | RLD: Yes | RS: No | Type: DISCN